FAERS Safety Report 8996838 (Version 5)
Quarter: 2015Q1

REPORT INFORMATION
  Report Type: Spontaneous
  Country: US (occurrence: US)
  Receive Date: 20130104
  Receipt Date: 20150115
  Transmission Date: 20150721
  Serious: Yes (Hospitalization, Other)
  Sender: FDA-Public Use
  Company Number: US-009507513-1203USA00762

PATIENT
  Sex: Female
  Weight: 63.39 kg

DRUGS (4)
  1. FOSAMAX [Suspect]
     Active Substance: ALENDRONATE SODIUM
     Indication: OSTEITIS DEFORMANS
     Dosage: 40 MG, QD
     Dates: start: 2006, end: 20110517
  2. CITRICAL [Concomitant]
     Active Substance: CALCIUM CITRATE
     Dosage: UNK
     Dates: start: 2006
  3. CALCIUM (UNSPECIFIED) [Concomitant]
     Active Substance: CALCIUM
     Dosage: UNK
     Dates: start: 2006
  4. FOSAMAX [Suspect]
     Active Substance: ALENDRONATE SODIUM
     Indication: OSTEITIS DEFORMANS
     Dosage: 70 MG, UNK
     Route: 048
     Dates: start: 200609, end: 201110

REACTIONS (16)
  - Femur fracture [Unknown]
  - Joint dislocation reduction [Unknown]
  - Upper limb fracture [Unknown]
  - Cough [Unknown]
  - Lipoma excision [Unknown]
  - Femur fracture [Unknown]
  - Open reduction of fracture [Unknown]
  - Hypertension [Unknown]
  - Cataract operation [Unknown]
  - Hiatus hernia [Unknown]
  - Stress fracture [Unknown]
  - Large intestinal ulcer [Unknown]
  - Osteoporosis [Unknown]
  - Femur fracture [Unknown]
  - Decubitus ulcer [Unknown]
  - Low turnover osteopathy [Unknown]

NARRATIVE: CASE EVENT DATE: 2010
